FAERS Safety Report 7230713-8 (Version None)
Quarter: 2011Q1

REPORT INFORMATION
  Report Type: 
  Country: None (occurrence: None)
  Receive Date: 20110118
  Receipt Date: 20110112
  Transmission Date: 20110831
  Serious: No
  Sender: FDA-Public Use
  Company Number: US-PFIZER INC-US-WYE-H13162410

PATIENT
  Sex: Male

DRUGS (6)
  1. ACETYLSALICYLIC ACID [Suspect]
     Dosage: UNK
     Route: 065
  2. LIPITOR [Suspect]
     Dosage: 20.0 MG, 1X/DAY
     Route: 065
  3. SYNTHROID [Suspect]
     Dosage: UNK
     Route: 065
  4. PROTONIX [Suspect]
     Dosage: UNK
     Route: 065
  5. ACICLOVIR [Suspect]
     Dosage: UNK
     Route: 065
  6. ALLEGRA [Suspect]
     Dosage: UNK
     Route: 065

REACTIONS (1)
  - DYSGEUSIA [None]
